FAERS Safety Report 12256301 (Version 1)
Quarter: 2016Q2

REPORT INFORMATION
  Report Type: Spontaneous
  Country: CA (occurrence: CA)
  Receive Date: 20160412
  Receipt Date: 20160412
  Transmission Date: 20160815
  Serious: Yes (Hospitalization)
  Sender: FDA-Public Use
  Company Number: CA-BAYER-2016-063388

PATIENT
  Age: 63 Year
  Sex: Female
  Weight: 81.63 kg

DRUGS (1)
  1. GADOVIST [Suspect]
     Active Substance: GADOBUTROL
     Indication: PRODUCT USED FOR UNKNOWN INDICATION
     Dosage: 7.5 ML, ONCE
     Route: 042

REACTIONS (3)
  - Dyspnoea [Recovered/Resolved]
  - Loss of consciousness [Recovered/Resolved]
  - Throat irritation [Recovered/Resolved]
